FAERS Safety Report 6529890-3 (Version None)
Quarter: 2010Q1

REPORT INFORMATION
  Report Type: 
  Country: None (occurrence: None)
  Receive Date: 20100107
  Receipt Date: 20091231
  Transmission Date: 20100710
  Serious: Yes (Other)
  Sender: FDA-Public Use
  Company Number: A0837911A

PATIENT
  Age: 39 Year
  Sex: Female

DRUGS (10)
  1. LAMICTAL [Suspect]
     Indication: BIPOLAR DISORDER
     Dosage: 225MG TWICE PER DAY
     Route: 065
     Dates: start: 20060101
  2. PROZAC [Concomitant]
     Dosage: 80MG PER DAY
  3. SEROQUEL [Concomitant]
     Dosage: 12.5MG PER DAY
  4. ACIPHEX [Concomitant]
     Dosage: 40MG PER DAY
  5. LIBRAX [Concomitant]
  6. FIORICET [Concomitant]
  7. AXERT [Concomitant]
  8. NASACORT [Concomitant]
  9. FLOVENT [Concomitant]
  10. PROVENTIL [Concomitant]

REACTIONS (2)
  - DRUG EXPOSURE DURING PREGNANCY [None]
  - GESTATIONAL DIABETES [None]
